FAERS Safety Report 13784934 (Version 1)
Quarter: 2017Q3

REPORT INFORMATION
  Report Type: Spontaneous
  Country: US (occurrence: US)
  Receive Date: 20170724
  Receipt Date: 20170724
  Transmission Date: 20171127
  Serious: No
  Sender: FDA-Public Use
  Company Number: US-IMPAX LABORATORIES, INC-2017-IPXL-01978

PATIENT
  Age: 65 Year
  Sex: Male

DRUGS (1)
  1. RYTARY [Suspect]
     Active Substance: CARBIDOPA\LEVODOPA
     Indication: PARKINSON^S DISEASE
     Dosage: 36.25MG/145 MG(2CAPS INEVENING+1 CAPS DAIY)+61.25/245MG (3CAPS,3/DAY) +2 CAPS AT BED TIME
     Route: 048
     Dates: start: 201506

REACTIONS (1)
  - Prescribed overdose [Unknown]
